FAERS Safety Report 5514259-0 (Version None)
Quarter: 2007Q4

REPORT INFORMATION
  Report Type: 
  Country: None (occurrence: None)
  Receive Date: 20071102
  Receipt Date: 20070815
  Transmission Date: 20080405
  Serious: Yes (Hospitalization)
  Sender: FDA-Public Use
  Company Number: 511870

PATIENT
  Age: 68 Year
  Sex: Female

DRUGS (10)
  1. BONIVA [Suspect]
     Indication: OSTEOPOROSIS
     Dosage: 3 MG
     Dates: start: 20070115
  2. PREDNISONE [Suspect]
     Indication: DRUG USE FOR UNKNOWN INDICATION
     Dosage: 5 MG DAILY
     Dates: start: 19830615
  3. ORENCIA (ABATACEPT) [Concomitant]
  4. CARDIZEM LA (DILTIAZEM) [Concomitant]
  5. PREMARIN [Concomitant]
  6. SYNTHROID [Concomitant]
  7. AMARYL [Concomitant]
  8. NEURONTIN [Concomitant]
  9. DIGOXIN [Concomitant]
  10. BENICAR [Concomitant]

REACTIONS (4)
  - DIARRHOEA [None]
  - GASTROINTESTINAL DISORDER [None]
  - PAIN IN JAW [None]
  - VOMITING [None]
